FAERS Safety Report 14110849 (Version 2)
Quarter: 2017Q4

REPORT INFORMATION
  Report Type: Report from Study
  Country: CN (occurrence: CN)
  Receive Date: 20171020
  Receipt Date: 20171108
  Transmission Date: 20180321
  Serious: Yes (Hospitalization)
  Sender: FDA-Public Use
  Company Number: US-ASTRAZENECA-2017SF05442

PATIENT
  Age: 23280 Day
  Sex: Male
  Weight: 52 kg

DRUGS (6)
  1. AMINOPHYLLINE. [Concomitant]
     Active Substance: AMINOPHYLLINE
     Indication: PNEUMONIA
     Dosage: ONGOING
     Route: 042
     Dates: start: 20170928
  2. SYMBICORT (160UG/4.5) [Concomitant]
     Indication: CHRONIC OBSTRUCTIVE PULMONARY DISEASE
     Route: 013
     Dates: start: 201701, end: 20170331
  3. BUDESONIDE AND FORMOTEROL FUMARATE POWDER FOR INHALATION (60UG:4.5UG) [Concomitant]
     Indication: CHRONIC OBSTRUCTIVE PULMONARY DISEASE
     Dosage: ONGOING
     Route: 013
     Dates: start: 20170926
  4. DOXYCYCLINE. [Concomitant]
     Active Substance: DOXYCYCLINE
     Indication: PNEUMONIA
     Dosage: EVERY DAY
     Route: 042
     Dates: start: 20170928, end: 20171008
  5. SYMBICORT [Suspect]
     Active Substance: BUDESONIDE\FORMOTEROL FUMARATE DIHYDRATE
     Indication: CHRONIC OBSTRUCTIVE PULMONARY DISEASE
     Dosage: 200/6 ???G BID
     Route: 055
     Dates: start: 20170413
  6. LEVOFLOXACIN. [Concomitant]
     Active Substance: LEVOFLOXACIN
     Indication: PNEUMONIA
     Dosage: ONGOING
     Route: 042
     Dates: start: 20171009

REACTIONS (1)
  - Chronic obstructive pulmonary disease [Recovered/Resolved]

NARRATIVE: CASE EVENT DATE: 20170928
